FAERS Safety Report 6350736-0 (Version None)
Quarter: 2009Q3

REPORT INFORMATION
  Report Type: 
  Country: None (occurrence: None)
  Receive Date: 20090911
  Receipt Date: 20090622
  Transmission Date: 20100115
  Serious: No
  Sender: FDA-Public Use
  Company Number: US-ABBOTT-07P-163-0369927-00

PATIENT
  Sex: Female
  Weight: 76.726 kg

DRUGS (9)
  1. HUMIRA [Suspect]
     Indication: CROHN'S DISEASE
     Route: 058
     Dates: start: 20070511, end: 20070525
  2. HUMIRA [Suspect]
     Route: 058
     Dates: start: 20070525
  3. HUMIRA [Suspect]
     Route: 058
  4. PENTASA [Concomitant]
     Indication: CROHN'S DISEASE
     Route: 048
  5. ESOMEPRAZOLE MAGNESIUM [Concomitant]
     Indication: CROHN'S DISEASE
     Route: 048
  6. STRATTERRA [Concomitant]
     Indication: ATTENTION DEFICIT/HYPERACTIVITY DISORDER
     Route: 048
  7. LEXAPRO [Concomitant]
     Indication: DEPRESSION
     Route: 048
  8. VYTORIN [Concomitant]
     Indication: BLOOD CHOLESTEROL
     Route: 048
  9. NORMENSAL [Concomitant]
     Indication: CONTRACEPTION
     Route: 048

REACTIONS (1)
  - INCORRECT DOSE ADMINISTERED [None]
